FAERS Safety Report 13469454 (Version 1)
Quarter: 2017Q2

REPORT INFORMATION
  Report Type: Spontaneous
  Country: US (occurrence: US)
  Receive Date: 20170421
  Receipt Date: 20170421
  Transmission Date: 20170830
  Serious: No
  Sender: FDA-Public Use
  Company Number: US-AMGEN-USASP2017059036

PATIENT
  Age: 42 Year
  Sex: Female

DRUGS (24)
  1. TOPIRAMATE. [Concomitant]
     Active Substance: TOPIRAMATE
     Dosage: UNK
  2. PRAZOSIN HCL [Concomitant]
     Active Substance: PRAZOSIN HYDROCHLORIDE
     Dosage: UNK
  3. ONDANSETRON HCL [Concomitant]
     Active Substance: ONDANSETRON HYDROCHLORIDE
     Dosage: UNK
  4. BUSPIRONE HCL [Concomitant]
     Active Substance: BUSPIRONE HYDROCHLORIDE
     Dosage: UNK
  5. CLONIDINE HCL [Concomitant]
     Active Substance: CLONIDINE HYDROCHLORIDE
     Dosage: UNK
  6. DULOXETINE HCL [Concomitant]
     Active Substance: DULOXETINE HYDROCHLORIDE
     Dosage: UNK
  7. PANTOPRAZOLE SODIUM. [Concomitant]
     Active Substance: PANTOPRAZOLE SODIUM
     Dosage: UNK
  8. ENBREL [Suspect]
     Active Substance: ETANERCEPT
     Indication: RHEUMATOID ARTHRITIS
     Dosage: 50 MG, QWK
     Route: 058
  9. HYDROXYCHLOROQUINE SULFATE. [Concomitant]
     Active Substance: HYDROXYCHLOROQUINE SULFATE
     Dosage: UNK
  10. TRAZODONE HYDROCHLORIDE. [Concomitant]
     Active Substance: TRAZODONE HYDROCHLORIDE
     Dosage: UNK
  11. CIPROFLOXACIN HCL [Concomitant]
     Active Substance: CIPROFLOXACIN HYDROCHLORIDE
     Dosage: UNK
  12. SUMATRIPTAN SUCCINATE. [Concomitant]
     Active Substance: SUMATRIPTAN SUCCINATE
     Dosage: UNK
  13. FOLIC ACID. [Concomitant]
     Active Substance: FOLIC ACID
     Dosage: UNK
  14. MIRTAZAPINE. [Concomitant]
     Active Substance: MIRTAZAPINE
     Dosage: UNK
  15. PROMETHAZINE HCL [Concomitant]
     Active Substance: PROMETHAZINE HYDROCHLORIDE
     Dosage: UNK
  16. METOCLOPRAMIDE HCL [Concomitant]
     Active Substance: METOCLOPRAMIDE HYDROCHLORIDE
     Dosage: UNK
  17. FLUTICASONE PROPIONATE. [Concomitant]
     Active Substance: FLUTICASONE PROPIONATE
     Dosage: UNK
  18. LYRICA [Concomitant]
     Active Substance: PREGABALIN
     Dosage: UNK
  19. RANITIDINE HCL [Concomitant]
     Active Substance: RANITIDINE HYDROCHLORIDE
     Dosage: UNK
  20. METHOTREXATE SODIUM. [Concomitant]
     Active Substance: METHOTREXATE SODIUM
     Dosage: UNK
  21. GABAPENTIN. [Concomitant]
     Active Substance: GABAPENTIN
     Dosage: UNK
  22. RIZATRIPTAN BENZOATE. [Concomitant]
     Active Substance: RIZATRIPTAN BENZOATE
     Dosage: UNK
  23. TEMAZEPAM. [Concomitant]
     Active Substance: TEMAZEPAM
     Dosage: UNK
  24. TIZANIDINE HCL [Concomitant]
     Active Substance: TIZANIDINE HYDROCHLORIDE
     Dosage: UNK

REACTIONS (3)
  - Pain [Not Recovered/Not Resolved]
  - Nausea [Recovered/Resolved]
  - Decreased interest [Unknown]
